FAERS Safety Report 6577155-6 (Version None)
Quarter: 2010Q1

REPORT INFORMATION
  Report Type: 
  Country: None (occurrence: None)
  Receive Date: 20100210
  Receipt Date: 20100128
  Transmission Date: 20100710
  Serious: Yes (Other)
  Sender: FDA-Public Use
  Company Number: PHEH2008US03277

PATIENT
  Sex: Male

DRUGS (31)
  1. ZELNORM [Suspect]
     Dosage: 6 MG / TWICE DAILY
     Dates: start: 20020101, end: 20070418
  2. LORAZEPAM [Concomitant]
     Dosage: 1 MG / 3 X DAILY
  3. PREVACID [Concomitant]
     Dosage: 30 MG / DAILY
  4. ASPIRIN [Concomitant]
     Dosage: 81 MG / DAILY
  5. SIMVASTATIN [Concomitant]
     Dosage: 40 MG / DAILY
  6. CLOPIDOGREL SULFATE [Concomitant]
     Dosage: UNK
  7. ISOSORBIDE MONONITRATE [Concomitant]
     Dosage: 30 MG / DAILY
  8. METOPROLOL TARTRATE [Concomitant]
     Dosage: 25 MG / TWICE DAILY
  9. SINGULAIR [Concomitant]
     Dosage: 10 MG  / DAILY
  10. ADVAIR DISKUS 100/50 [Concomitant]
     Dosage: 100/50 , TWICE DAILY
  11. CLONAZEPAM [Concomitant]
     Dosage: 1 MG / DAILY
  12. MIRALAX [Concomitant]
     Dosage: UNK
  13. AMITIZA [Concomitant]
     Dosage: UNK
  14. PLAVIX [Concomitant]
     Dosage: UNK
  15. ALBUTEROL [Concomitant]
     Dosage: UNK
  16. GLUCOSAMINE [Concomitant]
     Dosage: UNK
  17. CHONDROITIN A [Concomitant]
     Dosage: UNK
  18. PERCOCET [Concomitant]
     Dosage: UNK
  19. COUMADIN [Concomitant]
     Dosage: UNK
  20. CELECOXIB [Concomitant]
     Dosage: 400 MG /
     Route: 048
  21. GABAPENTIN [Concomitant]
     Dosage: 300 MG
     Route: 048
  22. HYDROMORPHONE HYDROCHLORIDE [Concomitant]
     Dosage: 5 ML
  23. LANSOPRAZOLE [Concomitant]
     Dosage: 30 MG
     Route: 048
  24. MIDAZOLAM HCL [Concomitant]
     Dosage: 2 MG
  25. PANTOPRAZOLE [Concomitant]
     Dosage: 40 MG
     Route: 048
  26. VANCOMYCIN [Concomitant]
     Dosage: 1000 MG
  27. NALOXONE [Concomitant]
     Dosage: 0.04 MG / Q4H , PRN
  28. ONDANSETRON [Concomitant]
     Dosage: 4 MG / PRN
  29. ASPIRIN [Concomitant]
     Dosage: 325 MG / DAILY
     Route: 048
  30. LOPRESSOR [Concomitant]
     Dosage: 25 MG / TWICE DAILY
     Route: 048
  31. NITROGLYCERIN [Concomitant]
     Dosage: 1/2 INCH / Q8

REACTIONS (35)
  - ADENOMA BENIGN [None]
  - ANXIETY [None]
  - BLINDNESS [None]
  - CARDIAC STRESS TEST [None]
  - CHRONIC OBSTRUCTIVE PULMONARY DISEASE [None]
  - COLONOSCOPY [None]
  - DYSURIA [None]
  - FALL [None]
  - GAIT DISTURBANCE [None]
  - GASTROINTESTINAL HAEMORRHAGE [None]
  - GENERALISED ANXIETY DISORDER [None]
  - HAEMORRHOIDS [None]
  - HIP SURGERY [None]
  - HYPERLIPIDAEMIA [None]
  - ILEUS [None]
  - ISCHAEMIA [None]
  - LASER THERAPY [None]
  - LUMBAR SPINAL STENOSIS [None]
  - MELANOSIS COLI [None]
  - MYOCARDIAL INFARCTION [None]
  - OSTEOPOROSIS [None]
  - PAIN [None]
  - PHOTOCOAGULATION [None]
  - POLYP [None]
  - POLYPECTOMY [None]
  - RETINAL DEGENERATION [None]
  - RETINAL DETACHMENT [None]
  - RETINAL HAEMORRHAGE [None]
  - RHINITIS [None]
  - SINUSITIS [None]
  - SPINAL OSTEOARTHRITIS [None]
  - STENT PLACEMENT [None]
  - STRESS URINARY INCONTINENCE [None]
  - URINE COLOUR ABNORMAL [None]
  - VITRECTOMY [None]
